FAERS Safety Report 6054413-5 (Version None)
Quarter: 2009Q1

REPORT INFORMATION
  Report Type: 
  Country: None (occurrence: None)
  Receive Date: 20090123
  Receipt Date: 20090123
  Transmission Date: 20090719
  Serious: No
  Sender: FDA-Public Use
  Company Number: None

PATIENT
  Sex: Female

DRUGS (1)
  1. METHIMAZOLE [Suspect]
     Indication: HAEMOPTYSIS
     Dosage: 5 MG 1X/D PO
     Dates: start: 20080501, end: 20081101

REACTIONS (1)
  - HAEMOPTYSIS [None]
